FAERS Safety Report 14015500 (Version 1)
Quarter: 2017Q3

REPORT INFORMATION
  Report Type: Report from Study
  Country: JP (occurrence: JP)
  Receive Date: 20170927
  Receipt Date: 20170927
  Transmission Date: 20171128
  Serious: Yes (Other)
  Sender: FDA-Public Use
  Company Number: JP-ROCHE-1936403

PATIENT

DRUGS (3)
  1. INTERFERON ALFA-2B [Suspect]
     Active Substance: INTERFERON ALFA-2B
     Indication: HEPATITIS C
     Dosage: 6  OR 10 MU EVERY DAY
     Route: 065
  2. INTERFERON ALFA-2B [Suspect]
     Active Substance: INTERFERON ALFA-2B
     Dosage: 6  OR 10 MU THREE TIMES A WEEK
     Route: 065
  3. RIBAVIRIN. [Suspect]
     Active Substance: RIBAVIRIN
     Indication: HEPATITIS C
     Route: 065

REACTIONS (7)
  - Pneumothorax [Unknown]
  - Facial paralysis [Unknown]
  - Gastric ulcer haemorrhage [Unknown]
  - Retinal haemorrhage [Unknown]
  - Brain neoplasm [Unknown]
  - Haemolytic anaemia [Unknown]
  - Cerebral infarction [Unknown]
